FAERS Safety Report 18432367 (Version 1)
Quarter: 2020Q4

REPORT INFORMATION
  Report Type: Spontaneous
  Country: NL (occurrence: NL)
  Receive Date: 20201027
  Receipt Date: 20201027
  Transmission Date: 20210114
  Serious: Yes (Death, Other)
  Sender: FDA-Public Use
  Company Number: NL-AMNEAL PHARMACEUTICALS-2020-AMRX-03370

PATIENT
  Age: 66 Year
  Sex: Female

DRUGS (1)
  1. NOREPINEPHRINE BITARTRATE. [Suspect]
     Active Substance: NOREPINEPHRINE BITARTRATE
     Indication: VASOPRESSIVE THERAPY
     Dosage: 70 MCG/MIN
     Route: 065

REACTIONS (5)
  - Stress cardiomyopathy [Fatal]
  - Accidental overdose [Unknown]
  - Ventricular arrhythmia [Fatal]
  - Incorrect drug administration rate [Unknown]
  - Arteriospasm coronary [Fatal]
